FAERS Safety Report 8227935-6 (Version None)
Quarter: 2012Q1

REPORT INFORMATION
  Report Type: 
  Country: None (occurrence: None)
  Receive Date: 20120322
  Receipt Date: 20120321
  Transmission Date: 20120608
  Serious: Yes (Death, Hospitalization)
  Sender: FDA-Public Use
  Company Number: GXKR2010IL07175

PATIENT
  Age: 70 Year
  Sex: Female

DRUGS (14)
  1. OMEPRAZOLE [Concomitant]
  2. SIMVASTATIN [Concomitant]
  3. CEFTRIAXONE [Suspect]
     Indication: PNEUMONIA
     Route: 065
  4. AMITRIPTYLINE HCL [Concomitant]
     Indication: DEPRESSION
  5. CITALOPRAM HYDROBROMIDE [Concomitant]
  6. ENALAPRIL [Concomitant]
     Indication: HYPERTENSION
  7. ACETYLSALICYLIC ACID SRT [Concomitant]
  8. DORZOLAMIDE HYDROCHLORIDE [Concomitant]
  9. GLYBURIDE [Concomitant]
     Indication: TYPE 2 DIABETES MELLITUS
     Route: 048
  10. VERAPAMIL [Concomitant]
  11. THEOPHYLLINE [Concomitant]
  12. LATANOPROST [Concomitant]
  13. FUROSEMIDE [Concomitant]
  14. METFORMIN HCL [Concomitant]
     Route: 048

REACTIONS (10)
  - THROMBOCYTOPENIA [None]
  - TOXIC EPIDERMAL NECROLYSIS [None]
  - DISORIENTATION [None]
  - ACUTE RESPIRATORY DISTRESS SYNDROME [None]
  - BLISTER [None]
  - BODY TEMPERATURE INCREASED [None]
  - ERYTHEMA [None]
  - SKIN BURNING SENSATION [None]
  - HYPOGLYCAEMIA [None]
  - HAEMORRHAGE INTRACRANIAL [None]
